FAERS Safety Report 10996997 (Version 1)
Quarter: 2015Q1

REPORT INFORMATION
  Report Type: Spontaneous
  Country: US (occurrence: None)
  Receive Date: 20150331
  Receipt Date: 20150331
  Transmission Date: 20150721
  Serious: Yes (Hospitalization)
  Sender: FDA-Public Use
  Company Number: PHEH2014US024093

PATIENT
  Age: 90 Year
  Sex: Male

DRUGS (15)
  1. ATENOLOL. [Concomitant]
     Active Substance: ATENOLOL
  2. OXYBUTYNIN [Concomitant]
     Active Substance: OXYBUTYNIN
  3. BUPROPION [Concomitant]
     Active Substance: BUPROPION
  4. CIPRO [Concomitant]
     Active Substance: CIPROFLOXACIN HYDROCHLORIDE
  5. MELATONIN [Concomitant]
     Active Substance: MELATONIN
  6. TYLENOL [Concomitant]
     Active Substance: ACETAMINOPHEN
  7. HYDROCHLOROTHIAZIDE. [Concomitant]
     Active Substance: HYDROCHLOROTHIAZIDE
  8. NAMENDA [Concomitant]
     Active Substance: MEMANTINE HYDROCHLORIDE
  9. MIRALAX (MACROGOL) [Concomitant]
  10. SIMVASTATIN. [Concomitant]
     Active Substance: SIMVASTATIN
  11. VITAMIN D (ERGOCALCIFEROL) [Concomitant]
     Active Substance: ERGOCALCIFEROL
  12. RANITIDINE [Concomitant]
     Active Substance: RANITIDINE\RANITIDINE HYDROCHLORIDE
  13. XARELTO [Concomitant]
     Active Substance: RIVAROXABAN
  14. EXELON PATCH [Suspect]
     Active Substance: RIVASTIGMINE
     Indication: DEMENTIA
     Route: 062
  15. AVODART (DUTASTERIDE) [Concomitant]

REACTIONS (7)
  - Diarrhoea [None]
  - Urinary tract infection [None]
  - Tremor [None]
  - Dizziness [None]
  - Penile pain [None]
  - Peripheral swelling [None]
  - Abdominal pain upper [None]
